FAERS Safety Report 9129361 (Version 1)
Quarter: 2013Q1

REPORT INFORMATION
  Report Type: Spontaneous
  Country: US (occurrence: US)
  Receive Date: 20130228
  Receipt Date: 20130228
  Transmission Date: 20140127
  Serious: No
  Sender: FDA-Public Use
  Company Number: US-ABBOTT-13P-163-1046863-00

PATIENT
  Sex: Male
  Weight: 118.04 kg

DRUGS (3)
  1. ANDROGEL 1.62% [Suspect]
     Indication: BLOOD TESTOSTERONE DECREASED
     Dosage: 2 PUMPS
     Route: 061
     Dates: start: 201201, end: 201208
  2. ANDROGEL 1.62% [Suspect]
     Dosage: 1 PUMP
     Route: 061
     Dates: start: 201208
  3. CIALIS [Concomitant]
     Indication: ERECTILE DYSFUNCTION

REACTIONS (3)
  - Nervousness [Recovered/Resolved]
  - Drug ineffective [Not Recovered/Not Resolved]
  - Erectile dysfunction [Not Recovered/Not Resolved]
